FAERS Safety Report 4915962-3 (Version None)
Quarter: 2006Q1

REPORT INFORMATION
  Report Type: 
  Country: None (occurrence: None)
  Receive Date: 20060214
  Receipt Date: 20060126
  Transmission Date: 20060701
  Serious: Yes (Hospitalization)
  Sender: FDA-Public Use
  Company Number: US200601004810

PATIENT
  Age: 50 Year
  Sex: Male

DRUGS (3)
  1. CYMBALTA [Suspect]
     Dosage: SEE IMAGE
     Route: 048
     Dates: start: 20051210, end: 20060120
  2. IBUPROFEN [Concomitant]
  3. PROTONIX [Concomitant]

REACTIONS (3)
  - AMNESIA [None]
  - BLOOD GLUCOSE INCREASED [None]
  - SOMNOLENCE [None]
